FAERS Safety Report 9110834 (Version 2)
Quarter: 2014Q1

REPORT INFORMATION
  Report Type: Spontaneous
  Country: US (occurrence: US)
  Receive Date: 20130219
  Receipt Date: 20140213
  Transmission Date: 20141002
  Serious: No
  Sender: FDA-Public Use
  Company Number: US-BRISTOL-MYERS SQUIBB COMPANY-17235151

PATIENT
  Age: 79 Year
  Sex: Female

DRUGS (7)
  1. ORENCIA [Suspect]
     Indication: RHEUMATOID ARTHRITIS
     Dosage: LAST INFUSION WAS ON 12DEC2012;01MAY2013
     Route: 042
     Dates: start: 20120815
  2. HYZAAR [Concomitant]
     Dosage: 1DF:50/12.5MG
  3. PREDNISONE [Concomitant]
  4. POTASSIUM CHLORIDE [Concomitant]
  5. COUMADINE [Concomitant]
  6. LASIX [Concomitant]
  7. NOVOLOG [Concomitant]

REACTIONS (2)
  - Drug ineffective [Unknown]
  - Dysphonia [Unknown]
